FAERS Safety Report 9165681 (Version 1)
Quarter: 2013Q1

REPORT INFORMATION
  Report Type: Spontaneous
  Country: US (occurrence: None)
  Receive Date: 20130314
  Receipt Date: 20130314
  Transmission Date: 20140127
  Serious: Yes (Other)
  Sender: FDA-Public Use
  Company Number: None

PATIENT
  Sex: Female
  Weight: 97.98 kg

DRUGS (1)
  1. SULFAMETH + TMP TABS GENERIC FOR BACTRIM DS TABS [Suspect]
     Dosage: 800/160V/5898 ?1 TAB EVERY 12 HOURS
     Dates: start: 20130206, end: 20130210

REACTIONS (5)
  - Anxiety [None]
  - Paranoia [None]
  - Muscular weakness [None]
  - Fatigue [None]
  - Nasopharyngitis [None]
